FAERS Safety Report 16367175 (Version 2)
Quarter: 2019Q2

REPORT INFORMATION
  Report Type: Spontaneous
  Country: TR (occurrence: TR)
  Receive Date: 20190529
  Receipt Date: 20190603
  Transmission Date: 20190711
  Serious: Yes (Other)
  Sender: FDA-Public Use
  Company Number: TR-OTSUKA-2019_020986

PATIENT
  Age: 39 Year
  Sex: Female
  Weight: 91 kg

DRUGS (1)
  1. ABILIFY [Suspect]
     Active Substance: ARIPIPRAZOLE
     Indication: PRODUCT USED FOR UNKNOWN INDICATION
     Dosage: 30 MG, UNK
     Route: 048

REACTIONS (5)
  - Oligomenorrhoea [Recovered/Resolved]
  - Tinnitus [Recovered/Resolved]
  - Incorrect dose administered [Unknown]
  - Headache [Recovered/Resolved]
  - Therapy cessation [Unknown]

NARRATIVE: CASE EVENT DATE: 20180110
